FAERS Safety Report 8457858-9 (Version None)
Quarter: 2012Q2

REPORT INFORMATION
  Report Type: 
  Country: None (occurrence: None)
  Receive Date: 20120323
  Receipt Date: 20111019
  Transmission Date: 20120825
  Serious: Yes (Disabling)
  Sender: FDA-Public Use
  Company Number: 163-21880-11081614

PATIENT
  Age: 80 Year
  Sex: Male
  Weight: 93.441 kg

DRUGS (15)
  1. AMLODIPINE (ALMODIPINE) [Concomitant]
  2. MULTAQ [Concomitant]
  3. DIGOXIN [Concomitant]
  4. ZETIA [Concomitant]
  5. ASPIRIN [Concomitant]
  6. WELCHOL [Concomitant]
  7. ZOMETA [Concomitant]
  8. COMPAZINE [Concomitant]
  9. REVLIMID [Suspect]
     Indication: MULTIPLE MYELOMA
     Dosage: 25 MG, 1 IN 1 D, PO
     Route: 048
     Dates: start: 20110712
  10. NEXIUM [Concomitant]
  11. CALTRATE + VITAMIN D (LEKOVIT CA) [Concomitant]
  12. PERCOCET [Concomitant]
  13. DECADRON [Concomitant]
  14. LESCOL [Concomitant]
  15. OXYCODONE HCL [Concomitant]

REACTIONS (2)
  - BACK PAIN [None]
  - CONDITION AGGRAVATED [None]
